FAERS Safety Report 13197604 (Version 1)
Quarter: 2017Q1

REPORT INFORMATION
  Report Type: Report from Study
  Country: GB (occurrence: GB)
  Receive Date: 20170208
  Receipt Date: 20170208
  Transmission Date: 20170428
  Serious: Yes (Other)
  Sender: FDA-Public Use
  Company Number: GB-ALEXION PHARMACEUTICALS INC.-A201701146

PATIENT
  Age: 5 Month
  Sex: Male
  Weight: 5.8 kg

DRUGS (1)
  1. ASFOTASE ALFA [Suspect]
     Active Substance: ASFOTASE ALFA
     Indication: HYPOPHOSPHATASIA
     Dosage: 2.6 MG/KG, QD
     Route: 058
     Dates: start: 20160601

REACTIONS (6)
  - Craniosynostosis [Unknown]
  - Blood alkaline phosphatase increased [Unknown]
  - Weight gain poor [Unknown]
  - Vomiting [Unknown]
  - Vitamin B6 increased [Unknown]
  - Growth retardation [Unknown]

NARRATIVE: CASE EVENT DATE: 20161107
